FAERS Safety Report 6696599-5 (Version None)
Quarter: 2010Q2

REPORT INFORMATION
  Report Type: 
  Country: None (occurrence: None)
  Receive Date: 20100426
  Receipt Date: 20100420
  Transmission Date: 20101027
  Serious: Yes (Hospitalization)
  Sender: FDA-Public Use
  Company Number: A0785398A

PATIENT
  Age: 64 Year
  Sex: Female
  Weight: 96.4 kg

DRUGS (13)
  1. AVANDIA [Suspect]
     Dosage: 4MG TWICE PER DAY
     Route: 048
     Dates: start: 20050928, end: 20070702
  2. PAXIL [Concomitant]
  3. ENALAPRIL MALEATE [Concomitant]
  4. NEXIUM [Concomitant]
  5. PRAVACHOL [Concomitant]
  6. GLIPIZIDE [Concomitant]
  7. TRICOR [Concomitant]
  8. ASPIRIN [Concomitant]
  9. METFORMIN [Concomitant]
  10. INDOCIN [Concomitant]
  11. LEVOTHYROXINE [Concomitant]
  12. LORATADINE [Concomitant]
  13. GEMFIBROZIL [Concomitant]

REACTIONS (4)
  - ACUTE CORONARY SYNDROME [None]
  - CORONARY ARTERY DISEASE [None]
  - MYOCARDIAL INFARCTION [None]
  - MYOCARDIAL ISCHAEMIA [None]
